FAERS Safety Report 8599442-2 (Version None)
Quarter: 2012Q3

REPORT INFORMATION
  Report Type: 
  Country: None (occurrence: None)
  Receive Date: 20120816
  Receipt Date: 20120814
  Transmission Date: 20120928
  Serious: Yes (Other)
  Sender: FDA-Public Use
  Company Number: US-JNJFOC-20120403873

PATIENT
  Sex: Female

DRUGS (19)
  1. ADRIAMYCIN PFS [Suspect]
     Indication: BREAST CANCER
     Dosage: CYCLE 1
     Route: 042
  2. DOXORUBICIN HYDROCHLORIDE [Suspect]
     Dosage: CYCLE 3
     Route: 042
  3. CYCLOPHOSPHAMIDE [Suspect]
     Dosage: CYCLE 1
     Route: 042
  4. NOV-002 [Suspect]
     Route: 058
  5. CYCLOPHOSPHAMIDE [Suspect]
     Dosage: CYCLE 4
     Route: 042
  6. NOV-002 [Suspect]
     Indication: BREAST CANCER
     Dosage: ON DAY 1 OF EACH CYCLE OF CHEMOTHERAPY OVER 1 HR, APPROX 30 MIONS BEFORE INFUSION OF CHEMOTHERAPY
     Route: 042
  7. NOV-002 [Suspect]
     Dosage: LOADING DOSE 1 DAY BEFORE INITIATION OF CHEMOTHERAPY, 2 DOSES GIVEN 3 HRS APART
     Route: 042
  8. CYCLOPHOSPHAMIDE [Suspect]
     Indication: BREAST CANCER
     Dosage: CYCLE 3
     Route: 042
  9. DOCETAXEL [Suspect]
     Dosage: CYCLE 1
     Route: 042
  10. DOXORUBICIN HYDROCHLORIDE [Suspect]
     Dosage: CYCLE 2
     Route: 042
  11. DOXORUBICIN HYDROCHLORIDE [Suspect]
     Dosage: CYCLE 1
     Route: 042
  12. ADRIAMYCIN PFS [Suspect]
     Dosage: CYCLE 3
     Route: 042
  13. ADRIAMYCIN PFS [Suspect]
     Dosage: CYCLE 2
     Route: 042
  14. ADRIAMYCIN PFS [Suspect]
     Dosage: CYCLE 4
     Route: 042
  15. DOCETAXEL [Suspect]
     Indication: BREAST CANCER
     Dosage: CYCLE 3
     Route: 042
  16. DOCETAXEL [Suspect]
     Dosage: CYCLE 2
     Route: 042
  17. DOXORUBICIN HYDROCHLORIDE [Suspect]
     Indication: BREAST CANCER
     Dosage: CYCLE 4
     Route: 042
  18. CYCLOPHOSPHAMIDE [Suspect]
     Dosage: CYCLE 2
     Route: 042
  19. DOCETAXEL [Suspect]
     Dosage: CYCLE 4
     Route: 042

REACTIONS (1)
  - FEMORAL ARTERY OCCLUSION [None]
